FAERS Safety Report 8192024-6 (Version None)
Quarter: 2012Q1

REPORT INFORMATION
  Report Type: 
  Country: None (occurrence: None)
  Receive Date: 20120307
  Receipt Date: 20120305
  Transmission Date: 20120608
  Serious: Yes (Other)
  Sender: FDA-Public Use
  Company Number: PHHY2011JP41250

PATIENT
  Age: 35 Year
  Sex: Female

DRUGS (2)
  1. CARBAMAZEPINE [Suspect]
     Dosage: 1200 MG EVERY DAY
     Route: 048
  2. CARBAMAZEPINE [Suspect]
     Indication: TRIGEMINAL NEURALGIA
     Route: 048

REACTIONS (2)
  - CENTRAL NERVOUS SYSTEM LESION [None]
  - DRUG INEFFECTIVE [None]
